FAERS Safety Report 14582338 (Version 1)
Quarter: 2018Q1

REPORT INFORMATION
  Report Type: Spontaneous
  Country: ES (occurrence: ES)
  Receive Date: 20180228
  Receipt Date: 20180228
  Transmission Date: 20180509
  Serious: Yes (Hospitalization, Other)
  Sender: FDA-Public Use
  Company Number: ES-UCBSA-2018007354

PATIENT
  Age: 45 Year
  Sex: Male

DRUGS (8)
  1. CIMZIA [Suspect]
     Active Substance: CERTOLIZUMAB PEGOL
     Indication: PRODUCT USED FOR UNKNOWN INDICATION
     Dosage: UNK
  2. LEFLUNOMIDE. [Suspect]
     Active Substance: LEFLUNOMIDE
     Indication: PRODUCT USED FOR UNKNOWN INDICATION
  3. ACFOL [Suspect]
     Active Substance: FOLIC ACID
     Indication: PRODUCT USED FOR UNKNOWN INDICATION
     Dosage: 5 MG/DAY
  4. PREDNISONE. [Suspect]
     Active Substance: PREDNISONE
     Indication: PRODUCT USED FOR UNKNOWN INDICATION
     Dosage: OCT/2014 WITH A NEW DOSE REDUCTION IN JUN/2015
  5. ROACTEMRA [Suspect]
     Active Substance: TOCILIZUMAB
     Indication: RHEUMATOID ARTHRITIS
  6. PREDNISONE. [Suspect]
     Active Substance: PREDNISONE
     Dosage: OCT/2014 WITH A NEW DOSE REDUCTION IN JUN/2015
  7. CIMZIA [Suspect]
     Active Substance: CERTOLIZUMAB PEGOL
     Dosage: UNK UNK, EV 2 WEEKS(QOW)
  8. METHOTREXATE. [Suspect]
     Active Substance: METHOTREXATE
     Indication: PRODUCT USED FOR UNKNOWN INDICATION
     Dosage: 20 MG/WEEK

REACTIONS (11)
  - Sleep apnoea syndrome [Unknown]
  - Bursitis [Unknown]
  - Pleural effusion [Unknown]
  - Pneumonia [Unknown]
  - Eosinophilia [Unknown]
  - Drug intolerance [Unknown]
  - Deafness neurosensory [Unknown]
  - Rhinitis allergic [Unknown]
  - Face oedema [Unknown]
  - Ill-defined disorder [Unknown]
  - Asthma [Unknown]

NARRATIVE: CASE EVENT DATE: 20101201
